FAERS Safety Report 10161705 (Version 1)
Quarter: 2014Q2

REPORT INFORMATION
  Report Type: Spontaneous
  Country: US (occurrence: US)
  Receive Date: 20140509
  Receipt Date: 20140509
  Transmission Date: 20141212
  Serious: Yes (Other)
  Sender: FDA-Public Use
  Company Number: US-AMGEN INC.-USASP2014032668

PATIENT
  Age: 61 Year
  Sex: Male

DRUGS (1)
  1. ENBREL [Suspect]
     Indication: PSORIASIS
     Dosage: 50 MG, QWK
     Route: 065
     Dates: start: 20110101, end: 201401

REACTIONS (4)
  - Post procedural complication [Recovered/Resolved]
  - Postoperative wound complication [Recovered/Resolved]
  - Post procedural drainage [Recovered/Resolved]
  - Foot operation [Recovered/Resolved]
